FAERS Safety Report 20167285 (Version 1)
Quarter: 2021Q4

REPORT INFORMATION
  Report Type: Spontaneous
  Country: US (occurrence: None)
  Receive Date: 20211208
  Receipt Date: 20211208
  Transmission Date: 20220303
  Serious: Yes (Hospitalization)
  Sender: FDA-Public Use
  Company Number: None

PATIENT
  Age: 63 Year
  Sex: Male
  Weight: 73.2 kg

DRUGS (1)
  1. NIVOLUMAB [Suspect]
     Active Substance: NIVOLUMAB
     Indication: Oesophageal carcinoma
     Dosage: OTHER FREQUENCY : Q4W;?
     Route: 042
     Dates: start: 20210722

REACTIONS (2)
  - Dyspnoea [None]
  - Immune-mediated lung disease [None]

NARRATIVE: CASE EVENT DATE: 20211207
